FAERS Safety Report 19545282 (Version 1)
Quarter: 2021Q3

REPORT INFORMATION
  Report Type: Spontaneous
  Country: US (occurrence: US)
  Receive Date: 20210714
  Receipt Date: 20210714
  Transmission Date: 20211014
  Serious: No
  Sender: FDA-Public Use
  Company Number: US-TARO-2021TAR00539

PATIENT

DRUGS (2)
  1. ACETAZOLAMIDE TABLETS 125 MG [Suspect]
     Active Substance: ACETAZOLAMIDE
     Indication: MASS
     Dosage: ASPIRATED
     Route: 065
  2. ACETAZOLAMIDE TABLETS 125 MG [Suspect]
     Active Substance: ACETAZOLAMIDE
     Indication: OEDEMA

REACTIONS (2)
  - Accidental exposure to product [Unknown]
  - Dyspnoea [Unknown]
